FAERS Safety Report 5555758-5 (Version None)
Quarter: 2007Q4

REPORT INFORMATION
  Report Type: 
  Country: None (occurrence: None)
  Receive Date: 20071213
  Receipt Date: 20071205
  Transmission Date: 20080405
  Serious: Yes (Other)
  Sender: FDA-Public Use
  Company Number: GB-PFIZER INC-2007102378

PATIENT
  Age: 60 Year
  Sex: Male

DRUGS (4)
  1. LIPITOR [Suspect]
     Route: 048
  2. INSULIN [Concomitant]
  3. LERCANIDIPINE [Concomitant]
  4. LOSARTAN POTASSIUM [Concomitant]

REACTIONS (3)
  - CAROTID ARTERY STENOSIS [None]
  - INFARCTION [None]
  - TRANSIENT ISCHAEMIC ATTACK [None]
